FAERS Safety Report 9254175 (Version 1)
Quarter: 2013Q2

REPORT INFORMATION
  Report Type: Spontaneous
  Country: US (occurrence: None)
  Receive Date: 20130416
  Receipt Date: 20130416
  Transmission Date: 20140414
  Serious: Yes (Other)
  Sender: FDA-Public Use
  Company Number: 2013035304

PATIENT
  Sex: Male
  Weight: 68.04 kg

DRUGS (17)
  1. PRIVIGEN [Suspect]
     Indication: IMMUNODEFICIENCY COMMON VARIABLE
     Dosage: 50 G 1X/4, WEEKS INTRAVENOUS (NOT OTHERWISE SPECIFIED)
     Route: 042
  2. CYMBALTA (DULOXETINE HYDROCHLORIDE) [Concomitant]
  3. PAXIL (PAROXETINE HYDROCHLORIDE [Concomitant]
  4. XANAX (ALPRAZOLAM) [Concomitant]
  5. FISH OIL (FISH OIL) [Concomitant]
  6. ARMOUR THYROID (THYROID) [Concomitant]
  7. IRON (IRON) [Concomitant]
  8. DIPHENHYDRAMINE (DIPHENHYDRAMINE) [Concomitant]
  9. HYDROCORTISONE (HYDROCORTISONE) [Concomitant]
  10. SODIUM CHLORIDE [Suspect]
  11. EPI-PEN (EPINEPHRINE) [Concomitant]
  12. LIALDA (MESALAZINE) [Concomitant]
  13. VALCYTE (VALGANCICLOVIR HYDROCHLORIDE) [Concomitant]
  14. SYNTHROID (LEVOTHYROXINE SODIUM) [Concomitant]
  15. CENTRUM (CENTRUM /01522201/) [Concomitant]
  16. CALCIUM + D (CALCIUM D3) [Concomitant]
  17. TYLENOL (PARACETAMOL) [Concomitant]

REACTIONS (1)
  - Parasitic gastroenteritis [None]
